FAERS Safety Report 16845681 (Version 1)
Quarter: 2019Q3

REPORT INFORMATION
  Report Type: Spontaneous
  Country: PT (occurrence: PT)
  Receive Date: 20190924
  Receipt Date: 20190924
  Transmission Date: 20191005
  Serious: Yes (Life-Threatening, Hospitalization, Other)
  Sender: FDA-Public Use
  Company Number: PHHY2019PT220668

PATIENT
  Sex: Female

DRUGS (1)
  1. PARACETAMOL [Suspect]
     Active Substance: ACETAMINOPHEN
     Indication: PAIN MANAGEMENT
     Dosage: 10 G, UNK
     Route: 065

REACTIONS (4)
  - Hyperlactacidaemia [Unknown]
  - Metabolic acidosis [Unknown]
  - Intentional overdose [Unknown]
  - Hepatic failure [Unknown]
